FAERS Safety Report 19043101 (Version 1)
Quarter: 2021Q1

REPORT INFORMATION
  Report Type: Spontaneous
  Country: US (occurrence: US)
  Receive Date: 20210323
  Receipt Date: 20210323
  Transmission Date: 20210420
  Serious: Yes (Other)
  Sender: FDA-Public Use
  Company Number: US-ALLERGAN-2107001US

PATIENT
  Age: 65 Year
  Sex: Male

DRUGS (2)
  1. LUMIGAN [Concomitant]
     Active Substance: BIMATOPROST
     Indication: GLAUCOMA
  2. DURYSTA [Suspect]
     Active Substance: BIMATOPROST
     Indication: GLAUCOMA
     Dosage: 10 ?G, SINGLE
     Route: 031
     Dates: start: 202008, end: 202008

REACTIONS (2)
  - Iritis [Not Recovered/Not Resolved]
  - Corneal oedema [Not Recovered/Not Resolved]

NARRATIVE: CASE EVENT DATE: 20210121
